FAERS Safety Report 9046528 (Version 1)
Quarter: 2013Q1

REPORT INFORMATION
  Report Type: Spontaneous
  Country: US (occurrence: None)
  Receive Date: 20130128
  Receipt Date: 20130128
  Transmission Date: 20140127
  Serious: Yes (Disabling)
  Sender: FDA-Public Use
  Company Number: None

PATIENT
  Age: 50 Year
  Sex: Female
  Weight: 89.36 kg

DRUGS (1)
  1. INFLIXIMAB [Suspect]
     Indication: CROHN^S DISEASE
     Dates: start: 20120312, end: 20121221

REACTIONS (24)
  - Headache [None]
  - Dyspnoea [None]
  - Rash [None]
  - Paraesthesia [None]
  - Rash [None]
  - Syncope [None]
  - Oropharyngeal pain [None]
  - Nervousness [None]
  - Dyskinesia [None]
  - Weight increased [None]
  - Palpitations [None]
  - Asthenia [None]
  - Arthralgia [None]
  - Pain [None]
  - Musculoskeletal pain [None]
  - Hypertension [None]
  - Abasia [None]
  - Infection [None]
  - Smear cervix abnormal [None]
  - Tremor [None]
  - Dizziness [None]
  - Blood glucose increased [None]
  - Back pain [None]
  - Abdominal pain [None]
